FAERS Safety Report 13647491 (Version 1)
Quarter: 2017Q2

REPORT INFORMATION
  Report Type: Spontaneous
  Country: US (occurrence: US)
  Receive Date: 20170613
  Receipt Date: 20170613
  Transmission Date: 20170830
  Serious: No
  Sender: FDA-Public Use
  Company Number: US-PFIZER INC-2017257723

PATIENT
  Age: 78 Year
  Sex: Male
  Weight: 82 kg

DRUGS (1)
  1. FLUCONAZOLE. [Suspect]
     Active Substance: FLUCONAZOLE
     Indication: FUNGAL SKIN INFECTION
     Dosage: 150 MG, UNK

REACTIONS (9)
  - Nausea [Unknown]
  - Pain [Unknown]
  - Pruritus [Unknown]
  - Hypersomnia [Recovered/Resolved with Sequelae]
  - Palmar erythema [Unknown]
  - Decreased appetite [Unknown]
  - Product use in unapproved indication [Unknown]
  - Headache [Unknown]
  - Pruritus generalised [Unknown]
